FAERS Safety Report 6763010-5 (Version None)
Quarter: 2010Q2

REPORT INFORMATION
  Report Type: 
  Country: None (occurrence: None)
  Receive Date: 20100609
  Receipt Date: 20100604
  Transmission Date: 20101027
  Serious: Yes (Other)
  Sender: FDA-Public Use
  Company Number: MX-ROCHE-700629

PATIENT
  Sex: Female
  Weight: 49 kg

DRUGS (8)
  1. CELLCEPT [Suspect]
     Indication: VOGT-KOYANAGI-HARADA SYNDROME
     Route: 048
     Dates: start: 20100414, end: 20100520
  2. CELLCEPT [Suspect]
     Dosage: FREQUENCY: 5 QD
     Route: 048
     Dates: start: 20100521
  3. METICORTEN [Concomitant]
     Dosage: DOSE: 20 MG, FREQUENCY: 1.5 QD
     Route: 048
     Dates: start: 20100414, end: 20100602
  4. PREDNEFRIN SF [Concomitant]
     Indication: INFLAMMATION
     Route: 047
     Dates: start: 20100414, end: 20100602
  5. DICLOFENAC [Concomitant]
     Dosage: DRUG NAME: 3-A OFTENO
     Route: 047
     Dates: start: 20100414
  6. OFTAN-TROPICAMID [Concomitant]
     Dosage: DRUG NAME: T-P OFTENO
     Route: 047
     Dates: start: 20100414
  7. RIOPAN [Concomitant]
     Indication: PROPHYLAXIS
     Route: 048
     Dates: start: 20100414, end: 20100602
  8. LOSEC I.V. [Concomitant]

REACTIONS (4)
  - BLOOD AMYLASE INCREASED [None]
  - DENTAL CARIES [None]
  - LEUKOCYTOSIS [None]
  - LIPASE INCREASED [None]
